FAERS Safety Report 17262015 (Version 3)
Quarter: 2020Q1

REPORT INFORMATION
  Report Type: Spontaneous
  Country: US (occurrence: US)
  Receive Date: 20200113
  Receipt Date: 20200130
  Transmission Date: 20200409
  Serious: Yes (Other)
  Sender: FDA-Public Use
  Company Number: US-HORIZON-KRY-0029-2020

PATIENT
  Age: 70 Year
  Sex: Male

DRUGS (11)
  1. KRYSTEXXA [Suspect]
     Active Substance: PEGLOTICASE
     Indication: GOUTY TOPHUS
     Dosage: 8MG EVERY 2 WEEKS
     Route: 042
     Dates: start: 20191021, end: 20191216
  2. ZYLOPRIM [Concomitant]
     Active Substance: ALLOPURINOL
     Dosage: 300MG
  3. DELTASONE [Concomitant]
     Active Substance: PREDNISONE
     Dosage: 1 TAB (5MG) BID
     Route: 048
  4. BENADRYL [Concomitant]
     Active Substance: DIPHENHYDRAMINE HYDROCHLORIDE
     Indication: PREMEDICATION
     Dosage: 50MG
     Route: 048
  5. SOLU-MEDROL [Concomitant]
     Active Substance: METHYLPREDNISOLONE SODIUM SUCCINATE
     Indication: PREMEDICATION
     Dosage: 100MG IV
     Route: 042
  6. ELIQUIS [Concomitant]
     Active Substance: APIXABAN
     Dosage: 5MG DAILY
     Route: 048
  7. PERCOCET [Concomitant]
     Active Substance: ACETAMINOPHEN\OXYCODONE HYDROCHLORIDE
     Indication: PAIN
     Dosage: 1 TAB BID PRN FOR UP TO 5 DAYS
     Route: 048
  8. MITIGARE [Concomitant]
     Active Substance: COLCHICINE
     Dosage: 1 CAPSULE (0.6MG) QD
     Route: 048
  9. TYLENOL [Concomitant]
     Active Substance: ACETAMINOPHEN
     Indication: PREMEDICATION
     Dosage: 650MG PO
     Route: 048
  10. MONODOX [Concomitant]
     Active Substance: DOXYCYCLINE
     Dosage: 100MG
     Route: 048
  11. CALAN-SR [Concomitant]
     Dosage: 180MG QD
     Route: 048

REACTIONS (3)
  - Therapeutic response decreased [Unknown]
  - Cellulitis [Recovered/Resolved]
  - Intentional dose omission [Unknown]

NARRATIVE: CASE EVENT DATE: 20191230
